FAERS Safety Report 23139422 (Version 1)
Quarter: 2023Q4

REPORT INFORMATION
  Report Type: Spontaneous
  Country: BA (occurrence: BA)
  Receive Date: 20231102
  Receipt Date: 20231102
  Transmission Date: 20240109
  Serious: Yes (Other)
  Sender: FDA-Public Use
  Company Number: BA-SUN PHARMACEUTICAL INDUSTRIES LTD-2023R1-415852

PATIENT
  Age: 57 Year
  Sex: Male

DRUGS (3)
  1. CARBOPLATIN [Suspect]
     Active Substance: CARBOPLATIN
     Indication: Chemotherapy
     Dosage: AUC 5
     Route: 042
  2. ETOPOSIDE [Suspect]
     Active Substance: ETOPOSIDE
     Indication: Chemotherapy
     Dosage: 100 MILLIGRAM/SQ. METER
     Route: 042
  3. ATEZOLIZUMAB [Suspect]
     Active Substance: ATEZOLIZUMAB
     Indication: Chemotherapy
     Dosage: 1200 MILLIGRAM
     Route: 042
     Dates: start: 201907, end: 202102

REACTIONS (2)
  - Neutropenia [Unknown]
  - Dysgeusia [Unknown]
